FAERS Safety Report 4655886-2 (Version None)
Quarter: 2005Q2

REPORT INFORMATION
  Report Type: 
  Country: None (occurrence: None)
  Receive Date: 20050509
  Receipt Date: 20050426
  Transmission Date: 20051028
  Serious: Yes (Life-Threatening, Hospitalization, Other)
  Sender: FDA-Public Use
  Company Number: CA-NOVOPROD-243864

PATIENT
  Age: 66 Year
  Weight: 94 kg

DRUGS (1)
  1. NIASTASE [Suspect]
     Indication: OFF LABEL USE
     Dosage: 2 DOSES OF 4.8 MG

REACTIONS (1)
  - PORTAL VEIN THROMBOSIS [None]
